FAERS Safety Report 8066988-5 (Version None)
Quarter: 2012Q1

REPORT INFORMATION
  Report Type: 
  Country: None (occurrence: None)
  Receive Date: 20120124
  Receipt Date: 20120119
  Transmission Date: 20120608
  Serious: Yes (Hospitalization, Other)
  Sender: FDA-Public Use
  Company Number: US-MERCK-1102USA02320

PATIENT
  Age: 68 Year
  Sex: Female
  Weight: 62 kg

DRUGS (7)
  1. FOSAMAX [Suspect]
     Indication: OSTEOPOROSIS PROPHYLAXIS
     Route: 048
     Dates: start: 19980101, end: 20010522
  2. FOSAMAX [Suspect]
     Route: 048
     Dates: start: 20010523, end: 20051026
  3. FOSAMAX [Suspect]
     Route: 048
     Dates: start: 20010523, end: 20051026
  4. BONIVA [Suspect]
     Indication: OSTEOPOROSIS PROPHYLAXIS
     Route: 048
     Dates: start: 20051226, end: 20090727
  5. FOSAMAX [Suspect]
     Indication: OSTEOPENIA
     Route: 048
     Dates: start: 19980101, end: 20010522
  6. VITAMINS (UNSPECIFIED) [Concomitant]
     Route: 065
     Dates: start: 19900101
  7. NEXIUM [Suspect]
     Indication: GASTROOESOPHAGEAL REFLUX DISEASE
     Route: 065
     Dates: start: 20050401, end: 20090701

REACTIONS (37)
  - SPINAL COLUMN STENOSIS [None]
  - DEAFNESS NEUROSENSORY [None]
  - DENTAL CARIES [None]
  - GASTROOESOPHAGEAL REFLUX DISEASE [None]
  - TENDONITIS [None]
  - SPINAL OSTEOARTHRITIS [None]
  - INTERVERTEBRAL DISC PROTRUSION [None]
  - BRONCHITIS [None]
  - LOW TURNOVER OSTEOPATHY [None]
  - DIVERTICULUM [None]
  - COUGH [None]
  - FEMUR FRACTURE [None]
  - OSTEOARTHRITIS [None]
  - GAIT DISTURBANCE [None]
  - FOOT FRACTURE [None]
  - INFLUENZA [None]
  - INTERVERTEBRAL DISC DEGENERATION [None]
  - THYROID NEOPLASM [None]
  - DRUG INEFFECTIVE [None]
  - GINGIVAL DISORDER [None]
  - ARTHROPATHY [None]
  - HYPERGLYCAEMIA [None]
  - HIATUS HERNIA [None]
  - ESCHERICHIA INFECTION [None]
  - HYPOTHYROIDISM [None]
  - HYPERCHOLESTEROLAEMIA [None]
  - SCIATICA [None]
  - RECTAL POLYP [None]
  - OSTEOPOROSIS [None]
  - HAEMORRHOIDS [None]
  - ANAEMIA POSTOPERATIVE [None]
  - MENISCUS LESION [None]
  - LOOSE BODY IN JOINT [None]
  - BURSITIS [None]
  - GASTRITIS [None]
  - TENDON DISORDER [None]
  - RENAL CYST [None]
